FAERS Safety Report 21493154 (Version 1)
Quarter: 2022Q4

REPORT INFORMATION
  Report Type: Spontaneous
  Country: US (occurrence: US)
  Receive Date: 20221021
  Receipt Date: 20221021
  Transmission Date: 20230112
  Serious: Yes (Hospitalization)
  Sender: FDA-Public Use
  Company Number: US-MYLANLABS-2022M1116012

PATIENT
  Age: 26 Year
  Sex: Male

DRUGS (1)
  1. LOPERAMIDE [Suspect]
     Active Substance: LOPERAMIDE
     Indication: Product used for unknown indication
     Dosage: UNK, 50-100 TABLETS DAILY FOR SEVERAL MONTHS
     Route: 065

REACTIONS (5)
  - Torsade de pointes [Recovered/Resolved]
  - Atrioventricular block [Recovered/Resolved]
  - Stress cardiomyopathy [Recovered/Resolved]
  - Drug abuse [Recovered/Resolved]
  - Intentional overdose [Recovered/Resolved]
